FAERS Safety Report 4294213-X (Version None)
Quarter: 2004Q1

REPORT INFORMATION
  Report Type: 
  Country: None (occurrence: None)
  Receive Date: 20040211
  Receipt Date: 20040201
  Transmission Date: 20041129
  Serious: Yes (Death)
  Sender: FDA-Public Use
  Company Number: 153-20785-04020063

PATIENT

DRUGS (3)
  1. THALIDOMIDE (THALIDOMIDE) (50 MILLIGRAM, CAPSULES) [Suspect]
     Indication: MULTIPLE MYELOMA
     Dosage: 100MG - 800MG, DAY, ORAL
     Route: 048
  2. DEXAMETHASONE [Suspect]
     Indication: MULTIPLE MYELOMA
     Dosage: 4 MG, QOD
  3. PAMIDRONATE DISODIUM [Concomitant]

REACTIONS (1)
  - SUDDEN CARDIAC DEATH [None]
